FAERS Safety Report 7055978-7 (Version None)
Quarter: 2010Q4

REPORT INFORMATION
  Report Type: 
  Country: None (occurrence: None)
  Receive Date: 20101021
  Receipt Date: 20101014
  Transmission Date: 20110411
  Serious: Yes (Other)
  Sender: FDA-Public Use
  Company Number: A0886404A

PATIENT
  Age: 57 Year
  Sex: Male

DRUGS (8)
  1. SELZENTRY [Suspect]
     Indication: HIV INFECTION
     Dosage: 300MG TWICE PER DAY
     Route: 048
  2. FUZEON [Suspect]
     Indication: HIV INFECTION
     Route: 058
  3. INTELENCE [Suspect]
     Indication: HIV INFECTION
     Route: 048
  4. AMBIEN [Concomitant]
  5. LOVAZA [Concomitant]
  6. PAXIL [Concomitant]
  7. LITHIUM [Concomitant]
  8. ZYPREXA [Concomitant]

REACTIONS (4)
  - DIABETES MELLITUS [None]
  - HYPERGLYCAEMIA [None]
  - POLYDIPSIA [None]
  - POLYURIA [None]
